FAERS Safety Report 10950499 (Version 1)
Quarter: 2015Q1

REPORT INFORMATION
  Report Type: Spontaneous
  Country: US (occurrence: None)
  Receive Date: 20150323
  Receipt Date: 20150323
  Transmission Date: 20150721
  Serious: No
  Sender: FDA-Public Use
  Company Number: None

PATIENT
  Age: 44 Year
  Sex: Female
  Weight: 105.24 kg

DRUGS (10)
  1. SUBOXONE [Suspect]
     Active Substance: BUPRENORPHINE HYDROCHLORIDE\NALOXONE HYDROCHLORIDE
     Indication: DRUG WITHDRAWAL SYNDROME
     Dosage: 1/2 OF A STRIP
     Route: 048
  2. INTERSTIM DEVICE [Concomitant]
  3. MOTRIN [Concomitant]
     Active Substance: IBUPROFEN
  4. WELL BUTRIN XL [Concomitant]
  5. BUSPAR [Concomitant]
     Active Substance: BUSPIRONE HYDROCHLORIDE
  6. LIDOCAINE PATCH/GEL [Concomitant]
  7. ZOFRAN [Concomitant]
     Active Substance: ONDANSETRON HYDROCHLORIDE
  8. SUBOXONE [Suspect]
     Active Substance: BUPRENORPHINE HYDROCHLORIDE\NALOXONE HYDROCHLORIDE
     Indication: PROPHYLAXIS
     Dosage: 1/2 OF A STRIP
     Route: 048
  9. LAMICTAL [Concomitant]
     Active Substance: LAMOTRIGINE
  10. PRILOSEC [Concomitant]
     Active Substance: OMEPRAZOLE MAGNESIUM

REACTIONS (2)
  - Stomatitis [None]
  - Oral pain [None]

NARRATIVE: CASE EVENT DATE: 20150322
